FAERS Safety Report 14350015 (Version 2)
Quarter: 2018Q1

REPORT INFORMATION
  Report Type: Spontaneous
  Country: US (occurrence: US)
  Receive Date: 20180104
  Receipt Date: 20180219
  Transmission Date: 20180509
  Serious: Yes (Other)
  Sender: FDA-Public Use
  Company Number: US-009507513-1712USA014294

PATIENT
  Sex: Male

DRUGS (2)
  1. TEMOZOLOMIDE. [Suspect]
     Active Substance: TEMOZOLOMIDE
     Indication: NEUROENDOCRINE CARCINOMA METASTATIC
     Dosage: UNK
     Route: 048
  2. CAPECITABINE. [Suspect]
     Active Substance: CAPECITABINE
     Indication: NEUROENDOCRINE CARCINOMA METASTATIC
     Dosage: UNK
     Route: 048

REACTIONS (4)
  - Malaise [Unknown]
  - Hepatic enzyme increased [Unknown]
  - Malignant neoplasm progression [Unknown]
  - Drug ineffective [Unknown]
